FAERS Safety Report 6223472-9 (Version None)
Quarter: 2009Q2

REPORT INFORMATION
  Report Type: 
  Country: None (occurrence: None)
  Receive Date: 20090610
  Receipt Date: 20090528
  Transmission Date: 20091009
  Serious: Yes (Other)
  Sender: FDA-Public Use
  Company Number: 8047073

PATIENT
  Age: 58 Year
  Sex: Female

DRUGS (2)
  1. KEPPRA [Suspect]
     Indication: CONVULSION PROPHYLAXIS
     Dosage: 500 MG 2/D PO
     Route: 048
     Dates: start: 20090317
  2. ACETAMINOPHEN AND CODEINE PHOSPHATE [Concomitant]

REACTIONS (1)
  - BRAIN TUMOUR OPERATION [None]
